FAERS Safety Report 19660093 (Version 1)
Quarter: 2021Q3

REPORT INFORMATION
  Report Type: Spontaneous
  Country: US (occurrence: US)
  Receive Date: 20210804
  Receipt Date: 20210804
  Transmission Date: 20211014
  Serious: No
  Sender: FDA-Public Use
  Company Number: None

PATIENT
  Age: 80 Year
  Sex: Male
  Weight: 71.55 kg

DRUGS (9)
  1. NORVASC [Concomitant]
     Active Substance: AMLODIPINE BESYLATE
  2. SIMVASTATIN 40MG [Concomitant]
     Active Substance: SIMVASTATIN
  3. POLYETHYLENE GLYCOL 3350 17GM [Concomitant]
  4. ASPIRIN EC 81MG [Concomitant]
  5. REGLAN [Concomitant]
     Active Substance: METOCLOPRAMIDE HYDROCHLORIDE
  6. AMITRIPTYLINE 25MG [Concomitant]
     Active Substance: AMITRIPTYLINE
  7. CAPECITABINE. [Suspect]
     Active Substance: CAPECITABINE
     Indication: COLORECTAL CANCER
     Dosage: ?          OTHER FREQUENCY:BID X 14/21 DAYS;?
     Route: 048
     Dates: start: 20210629
  8. COLACE [Concomitant]
     Active Substance: DOCUSATE SODIUM
  9. NORCO 7.5?325MG [Concomitant]

REACTIONS (2)
  - Palmar-plantar erythrodysaesthesia syndrome [None]
  - Hiccups [None]

NARRATIVE: CASE EVENT DATE: 20210804
